FAERS Safety Report 9916060 (Version 1)
Quarter: 2014Q1

REPORT INFORMATION
  Report Type: Spontaneous
  Country: US (occurrence: None)
  Receive Date: 20140219
  Receipt Date: 20140219
  Transmission Date: 20141002
  Serious: Yes (Hospitalization, Disabling)
  Sender: FDA-Public Use
  Company Number: None

PATIENT
  Age: 40 Year
  Sex: Female
  Weight: 54.43 kg

DRUGS (1)
  1. KLONOPIN [Suspect]
     Indication: SLEEP DISORDER
     Route: 048

REACTIONS (3)
  - Withdrawal syndrome [None]
  - Impaired work ability [None]
  - Malaise [None]
